FAERS Safety Report 7589342-9 (Version None)
Quarter: 2011Q3

REPORT INFORMATION
  Report Type: 
  Country: None (occurrence: None)
  Receive Date: 20110705
  Receipt Date: 20110627
  Transmission Date: 20111222
  Serious: Yes (Hospitalization, Other)
  Sender: FDA-Public Use
  Company Number: FR-ROCHE-685801

PATIENT
  Sex: Female
  Weight: 53 kg

DRUGS (5)
  1. TORISEL [Suspect]
     Route: 042
     Dates: start: 20090910, end: 20100129
  2. METHOTREXATE [Concomitant]
     Indication: RHEUMATOID ARTHRITIS
     Dates: start: 20060101
  3. TORISEL [Suspect]
     Route: 042
     Dates: end: 20100201
  4. BEVACIZUMAB [Suspect]
     Route: 042
     Dates: start: 20090910, end: 20100129
  5. BEVACIZUMAB [Suspect]
     Route: 042
     Dates: end: 20100201

REACTIONS (3)
  - LUNG DISORDER [None]
  - CARDIAC FAILURE [None]
  - PYREXIA [None]
